FAERS Safety Report 26104490 (Version 1)
Quarter: 2025Q4

REPORT INFORMATION
  Report Type: Report from Study
  Country: US (occurrence: US)
  Receive Date: 20251130
  Receipt Date: 20251130
  Transmission Date: 20260117
  Serious: Yes (Other)
  Sender: ABBVIE
  Company Number: US-ABBVIE-6566555

PATIENT
  Age: 71 Year
  Sex: Female
  Weight: 98 kg

DRUGS (12)
  1. RINVOQ [Suspect]
     Active Substance: UPADACITINIB
     Indication: Rheumatoid arthritis
     Route: 048
     Dates: start: 20250227, end: 20250705
  2. HYDROCHLOROTHIAZIDE [Concomitant]
     Active Substance: HYDROCHLOROTHIAZIDE
     Indication: Product used for unknown indication
  3. VENLAFAXINE [Concomitant]
     Active Substance: VENLAFAXINE HYDROCHLORIDE
     Indication: Product used for unknown indication
  4. SOLIFENACIN [Concomitant]
     Active Substance: SOLIFENACIN
     Indication: Product used for unknown indication
  5. ACYCLOVIR [Concomitant]
     Active Substance: ACYCLOVIR
     Indication: Product used for unknown indication
  6. Moderna COVID-19 Vaccination [Concomitant]
     Indication: Product used for unknown indication
     Dates: start: 20250325
  7. Moderna COVID-19 Vaccination [Concomitant]
     Indication: Product used for unknown indication
     Dates: start: 20221021
  8. Moderna COVID-19 Vaccination [Concomitant]
     Indication: Product used for unknown indication
     Dates: start: 20231010
  9. Moderna COVID-19 Vaccination [Concomitant]
     Indication: Product used for unknown indication
     Dates: start: 20240910
  10. ORENCIA [Concomitant]
     Active Substance: ABATACEPT
     Indication: Product used for unknown indication
     Dates: start: 20250814
  11. METHOTREXATE [Concomitant]
     Active Substance: METHOTREXATE
     Indication: Product used for unknown indication
     Dates: start: 20250801
  12. LIPITOR [Concomitant]
     Active Substance: ATORVASTATIN CALCIUM
     Indication: Product used for unknown indication

REACTIONS (3)
  - Breast cancer metastatic [Not Recovered/Not Resolved]
  - Diverticulum intestinal [Unknown]
  - Thyroid mass [Unknown]

NARRATIVE: CASE EVENT DATE: 20251001
